FAERS Safety Report 8979479 (Version 1)
Quarter: 2012Q4

REPORT INFORMATION
  Report Type: 
  Country: US (occurrence: US)
  Receive Date: 20121221
  Receipt Date: 20121221
  Transmission Date: 20130627
  Serious: No
  Sender: FDA-Public Use
  Company Number: US-JHP PHARMACEUTICALS, LLC-JHP201100580

PATIENT
  Sex: Male

DRUGS (7)
  1. APLISOL DIAGNOSTIC ANTIGEN [Suspect]
     Indication: TUBERCULIN TEST
     Dosage: 0.1 ml, single
     Route: 023
     Dates: start: 20110921, end: 20110921
  2. ADVAIR [Concomitant]
     Dosage: UNK
  3. PRISTIQ [Concomitant]
  4. ASPIRIN [Concomitant]
  5. LOSARTAN [Concomitant]
  6. NOVOLIN R [Concomitant]
  7. LANTUS [Concomitant]

REACTIONS (2)
  - Asthma [Recovered/Resolved]
  - Injection site reaction [Recovered/Resolved]
